FAERS Safety Report 12972329 (Version 1)
Quarter: 2016Q4

REPORT INFORMATION
  Report Type: Spontaneous
  Country: US (occurrence: US)
  Receive Date: 20161124
  Receipt Date: 20161124
  Transmission Date: 20170207
  Serious: No
  Sender: FDA-Public Use
  Company Number: US-KYOWAKIRIN-2016BKK001044

PATIENT

DRUGS (1)
  1. SANCUSO [Suspect]
     Active Substance: GRANISETRON
     Indication: PROPHYLAXIS OF NAUSEA AND VOMITING
     Dosage: 1 DF, UNK
     Route: 062

REACTIONS (6)
  - Application site dryness [Unknown]
  - Application site pruritus [Unknown]
  - Application site rash [Unknown]
  - Application site warmth [Unknown]
  - Application site erythema [Unknown]
  - Wrong technique in product usage process [None]
